FAERS Safety Report 6386675-9 (Version None)
Quarter: 2009Q3

REPORT INFORMATION
  Report Type: 
  Country: None (occurrence: None)
  Receive Date: 20090928
  Receipt Date: 20090928
  Transmission Date: 20100115
  Serious: No
  Sender: FDA-Public Use
  Company Number: None

PATIENT

DRUGS (1)
  1. TESTOSTERONE [Suspect]

REACTIONS (7)
  - APPLICATION SITE REACTION [None]
  - DYSPHONIA [None]
  - PRODUCT COLOUR ISSUE [None]
  - PRODUCT CONTAMINATION [None]
  - RASH [None]
  - SKIN ULCER [None]
  - SPUTUM DISCOLOURED [None]
